FAERS Safety Report 17373491 (Version 3)
Quarter: 2020Q1

REPORT INFORMATION
  Report Type: Spontaneous
  Country: US (occurrence: US)
  Receive Date: 20200205
  Receipt Date: 20200313
  Transmission Date: 20200409
  Serious: Yes (Other)
  Sender: FDA-Public Use
  Company Number: US-BAYER-2020-017443

PATIENT
  Age: 42 Year
  Sex: Female
  Weight: 54.9 kg

DRUGS (2)
  1. POVIDONE-IODINE. [Concomitant]
     Active Substance: POVIDONE-IODINE
  2. MIRENA [Suspect]
     Active Substance: LEVONORGESTREL
     Indication: CONTRACEPTION
     Dosage: 20 MCG/24HR, CONT
     Route: 015
     Dates: start: 201911, end: 20200128

REACTIONS (8)
  - Genital haemorrhage [None]
  - Vaginal discharge [None]
  - Device expulsion [Recovered/Resolved]
  - Pelvic pain [None]
  - Post procedural discomfort [None]
  - Abdominal pain lower [None]
  - Vaginal haemorrhage [None]
  - Device issue [None]

NARRATIVE: CASE EVENT DATE: 20200128
